FAERS Safety Report 6168974-9 (Version None)
Quarter: 2009Q2

REPORT INFORMATION
  Report Type: 
  Country: None (occurrence: None)
  Receive Date: 20090427
  Receipt Date: 20090417
  Transmission Date: 20091009
  Serious: Yes (Other)
  Sender: FDA-Public Use
  Company Number: CA-WYE-G02426508

PATIENT
  Age: 29 Year
  Sex: Male

DRUGS (2)
  1. EFFEXOR XR [Suspect]
     Dosage: UNKNOWN
     Route: 048
     Dates: start: 20060101, end: 20080501
  2. EFFEXOR XR [Suspect]
     Dosage: UNKNOWN
     Route: 048
     Dates: start: 20080501

REACTIONS (9)
  - ABNORMAL BEHAVIOUR [None]
  - BLUNTED AFFECT [None]
  - DIZZINESS [None]
  - DRUG WITHDRAWAL SYNDROME [None]
  - HOMICIDE [None]
  - IMPULSE-CONTROL DISORDER [None]
  - NAUSEA [None]
  - PARAESTHESIA [None]
  - VERTIGO [None]
